FAERS Safety Report 9519664 (Version 3)
Quarter: 2013Q4

REPORT INFORMATION
  Report Type: Spontaneous
  Country: GB (occurrence: GB)
  Receive Date: 20130912
  Receipt Date: 20131004
  Transmission Date: 20140711
  Serious: Yes (Hospitalization)
  Sender: FDA-Public Use
  Company Number: GB-TEVA-430026ISR

PATIENT
  Age: 14 Year
  Sex: Male

DRUGS (8)
  1. TEMOZOLOMIDE [Suspect]
     Dosage: 105 MILLIGRAM DAILY;
     Route: 048
     Dates: start: 20130718
  2. BEVACIZUMAB [Suspect]
     Route: 042
     Dates: start: 20130718
  3. DEXAMETHASONE [Suspect]
     Dates: start: 20130703
  4. ONDANSETRON [Concomitant]
  5. SULFAMETHOXAZOLE W/TRIMETHOPRIM [Concomitant]
  6. PARACETAMOL [Concomitant]
     Dosage: 6520 MG
  7. CODEINE [Concomitant]
     Dates: start: 20130711
  8. CYCLIZINE [Concomitant]

REACTIONS (6)
  - Chest pain [Recovered/Resolved]
  - Constipation [Unknown]
  - Constipation [Unknown]
  - Nausea [Unknown]
  - Vomiting [Unknown]
  - Pyrexia [Unknown]
